FAERS Safety Report 9937609 (Version 1)
Quarter: 2014Q1

REPORT INFORMATION
  Report Type: Spontaneous
  Country: DE (occurrence: DE)
  Receive Date: 20140303
  Receipt Date: 20140303
  Transmission Date: 20141002
  Serious: Yes (Death)
  Sender: FDA-Public Use
  Company Number: DE-BEH-2014040765

PATIENT
  Age: 75 Year
  Sex: Male

DRUGS (1)
  1. PROTHROMBIN COMPLEX CONCENTRATES [Suspect]
     Indication: CARDIOVASCULAR DISORDER

REACTIONS (1)
  - Drug ineffective for unapproved indication [Fatal]
